FAERS Safety Report 5875980-8 (Version None)
Quarter: 2008Q3

REPORT INFORMATION
  Report Type: 
  Country: None (occurrence: None)
  Receive Date: 20080905
  Receipt Date: 20080901
  Transmission Date: 20090109
  Serious: Yes (Hospitalization)
  Sender: FDA-Public Use
  Company Number: ADE2008-0280

PATIENT
  Age: 28 Year
  Sex: Female

DRUGS (1)
  1. CIPROFLOXACIN [Suspect]
     Indication: URINARY TRACT INFECTION
     Dosage: 400 MG BID IV
     Route: 042

REACTIONS (6)
  - BODY TEMPERATURE INCREASED [None]
  - ERYTHEMA [None]
  - PRURITUS [None]
  - SWELLING [None]
  - TENOSYNOVITIS [None]
  - URTICARIA [None]
